FAERS Safety Report 19935066 (Version 2)
Quarter: 2021Q4

REPORT INFORMATION
  Report Type: Spontaneous
  Country: US (occurrence: DE)
  Receive Date: 20211008
  Receipt Date: 20211027
  Transmission Date: 20220303
  Serious: No
  Sender: FDA-Public Use
  Company Number: DE-SA-SAC20210219001321

PATIENT
  Age: 25 Year
  Sex: Female
  Weight: 87 kg

DRUGS (3)
  1. DUPIXENT [Suspect]
     Active Substance: DUPILUMAB
     Indication: Dermatitis atopic
     Dosage: 300 MG
     Route: 058
     Dates: start: 20200424
  2. MONTELUKAST [Concomitant]
     Active Substance: MONTELUKAST SODIUM
     Indication: Asthma
     Dosage: UNK
     Route: 048
  3. FLUTICASONE PROPIONATE\SALMETEROL XINAFOATE [Concomitant]
     Active Substance: FLUTICASONE PROPIONATE\SALMETEROL XINAFOATE
     Indication: Asthma
     Dosage: UNK
     Route: 055

REACTIONS (1)
  - Exposure during pregnancy [Recovered/Resolved]

NARRATIVE: CASE EVENT DATE: 20201128
